FAERS Safety Report 6653755-X (Version None)
Quarter: 2010Q1

REPORT INFORMATION
  Report Type: 
  Country: None (occurrence: None)
  Receive Date: 20100326
  Receipt Date: 20100322
  Transmission Date: 20100710
  Serious: Yes (Hospitalization, Other)
  Sender: FDA-Public Use
  Company Number: A0751189A

PATIENT
  Sex: Male
  Weight: 91 kg

DRUGS (3)
  1. LAPATINIB [Suspect]
     Dosage: 1500MG PER DAY
     Route: 048
     Dates: start: 20080911
  2. CISPLATIN [Suspect]
     Dosage: 100MGM2 CYCLIC
     Route: 042
     Dates: start: 20080916
  3. RADIATION [Suspect]
     Dosage: 1.77GY PER DAY
     Route: 061
     Dates: start: 20080915

REACTIONS (7)
  - DIARRHOEA [None]
  - HYPOCHLORAEMIA [None]
  - HYPONATRAEMIA [None]
  - NAUSEA [None]
  - RENAL TUBULAR DISORDER [None]
  - VOMITING [None]
  - WEIGHT DECREASED [None]
